FAERS Safety Report 5834876-8 (Version None)
Quarter: 2008Q3

REPORT INFORMATION
  Report Type: 
  Country: None (occurrence: None)
  Receive Date: 20080805
  Receipt Date: 20080805
  Transmission Date: 20090109
  Serious: Yes (Other)
  Sender: FDA-Public Use
  Company Number: None

PATIENT
  Age: 42 Year
  Sex: Female
  Weight: 50.3493 kg

DRUGS (2)
  1. ZICAM ?COLD REMEDY? SPRAY [Suspect]
     Indication: SINUSITIS
     Dosage: PER DIRECTIONS ON BOTTLE
     Dates: start: 20071015, end: 20071021
  2. ZICAM ?COLD REMEDY? SPRAY [Suspect]
     Indication: SINUSITIS
     Dosage: PER DIRECTIONS ON BOTTLE
     Dates: start: 20071110, end: 20071116

REACTIONS (1)
  - HYPOSMIA [None]
